FAERS Safety Report 6933777-1 (Version None)
Quarter: 2010Q3

REPORT INFORMATION
  Report Type: 
  Country: None (occurrence: None)
  Receive Date: 20100820
  Receipt Date: 20100811
  Transmission Date: 20110219
  Serious: Yes (Life-Threatening, Other)
  Sender: FDA-Public Use
  Company Number: US-PFIZER INC-2009161053

PATIENT
  Sex: Male
  Weight: 86.168 kg

DRUGS (4)
  1. CHANTIX [Suspect]
     Indication: SMOKING CESSATION THERAPY
     Dosage: 0.5 MG, 1X/DAY
     Dates: start: 20090116, end: 20090117
  2. CHANTIX [Suspect]
     Dosage: 0.5 MG, UNK
     Route: 048
     Dates: start: 20090501, end: 20100801
  3. NICOTROL [Suspect]
     Indication: SMOKING CESSATION THERAPY
     Dosage: UNK
     Dates: start: 20080801
  4. ULTRASE MT20 [Concomitant]
     Indication: PANCREATITIS
     Dosage: 20 MG, 4X/DAY
     Route: 048

REACTIONS (18)
  - ABNORMAL DREAMS [None]
  - ANAPHYLACTIC REACTION [None]
  - ANGER [None]
  - ANXIETY [None]
  - BLOOD PRESSURE INCREASED [None]
  - BONE PAIN [None]
  - DIARRHOEA [None]
  - DYSPNOEA [None]
  - ECCHYMOSIS [None]
  - FEELING ABNORMAL [None]
  - IRRITABILITY [None]
  - MENTAL DISORDER [None]
  - MYALGIA [None]
  - NAUSEA [None]
  - PAIN [None]
  - PRURITUS [None]
  - RASH [None]
  - SOCIAL AVOIDANT BEHAVIOUR [None]
